FAERS Safety Report 21579937 (Version 1)
Quarter: 2022Q4

REPORT INFORMATION
  Report Type: Spontaneous
  Country: US (occurrence: US)
  Receive Date: 20221110
  Receipt Date: 20221110
  Transmission Date: 20230113
  Serious: No
  Sender: FDA-Public Use
  Company Number: US-009507513-2210USA008144

PATIENT
  Age: 14 Year

DRUGS (2)
  1. PREVYMIS [Suspect]
     Active Substance: LETERMOVIR
     Indication: Antiviral prophylaxis
     Dosage: 240 MILLIGRAM, QD
  2. PREVYMIS [Suspect]
     Active Substance: LETERMOVIR
     Indication: Prophylaxis

REACTIONS (2)
  - Off label use [Unknown]
  - Wrong technique in product usage process [Unknown]
